FAERS Safety Report 8623180-0 (Version None)
Quarter: 2012Q3

REPORT INFORMATION
  Report Type: 
  Country: None (occurrence: None)
  Receive Date: 20120827
  Receipt Date: 20120821
  Transmission Date: 20120928
  Serious: No
  Sender: FDA-Public Use
  Company Number: PHEH2012US016603

PATIENT
  Age: 60 Year
  Sex: Male

DRUGS (8)
  1. FENOFIBRATE [Concomitant]
  2. TASIGNA [Suspect]
     Indication: CHRONIC MYELOID LEUKAEMIA
     Dosage: 300 MG, BID
     Route: 048
     Dates: start: 20101015
  3. KLOR-CON [Concomitant]
  4. CRESTOR [Concomitant]
  5. GLIPIZIDE [Concomitant]
  6. FUROSEMIDE [Concomitant]
  7. ANDROGEL [Concomitant]
  8. POTASSIUM [Concomitant]

REACTIONS (2)
  - OEDEMA PERIPHERAL [None]
  - FATIGUE [None]
